FAERS Safety Report 13292891 (Version 1)
Quarter: 2017Q1

REPORT INFORMATION
  Report Type: Spontaneous
  Country: US (occurrence: US)
  Receive Date: 20170303
  Receipt Date: 20170303
  Transmission Date: 20170428
  Serious: No
  Sender: FDA-Public Use
  Company Number: US-ABBVIE-16P-163-1586501-00

PATIENT
  Age: 42 Year
  Sex: Female
  Weight: 63.56 kg

DRUGS (2)
  1. LUPRON DEPOT [Suspect]
     Active Substance: LEUPROLIDE ACETATE
     Indication: ENDOMETRIOSIS
     Route: 030
     Dates: start: 20150811, end: 20150811
  2. ESTRADIOL. [Concomitant]
     Active Substance: ESTRADIOL
     Indication: PRODUCT USED FOR UNKNOWN INDICATION
     Dates: start: 2016

REACTIONS (6)
  - Muscle spasms [Recovering/Resolving]
  - Hot flush [Recovered/Resolved]
  - Vaginal haemorrhage [Recovered/Resolved]
  - Hypoaesthesia [Recovering/Resolving]
  - Uterine inflammation [Recovering/Resolving]
  - Ovarian atrophy [Not Recovered/Not Resolved]

NARRATIVE: CASE EVENT DATE: 2015
